FAERS Safety Report 4478092-3 (Version None)
Quarter: 2004Q3

REPORT INFORMATION
  Report Type: 
  Country: None (occurrence: None)
  Receive Date: 20040923
  Receipt Date: 20040803
  Transmission Date: 20050211
  Serious: No
  Sender: FDA-Public Use
  Company Number: USA040671461

PATIENT
  Age: 77 Year
  Sex: Female
  Weight: 57 kg

DRUGS (5)
  1. FORTEO [Suspect]
     Indication: OSTEOPOROSIS
     Dosage: 20 UG DAY
     Dates: start: 20040511
  2. PRILOSEC [Concomitant]
  3. METHADONE HCL [Concomitant]
  4. NEURONTIN [Concomitant]
  5. QUININE [Concomitant]

REACTIONS (4)
  - ARTHRALGIA [None]
  - HAND FRACTURE [None]
  - MUSCLE CRAMP [None]
  - NAUSEA [None]
